FAERS Safety Report 7517494-5 (Version None)
Quarter: 2011Q2

REPORT INFORMATION
  Report Type: 
  Country: None (occurrence: None)
  Receive Date: 20110601
  Receipt Date: 20110525
  Transmission Date: 20111010
  Serious: Yes (Other)
  Sender: FDA-Public Use
  Company Number: US-US-EMD SERONO, INC.-7038033

PATIENT
  Sex: Female

DRUGS (3)
  1. REBIF [Suspect]
     Route: 058
     Dates: start: 20110414
  2. REBIF [Suspect]
     Indication: MULTIPLE SCLEROSIS
     Dates: start: 20090112, end: 20110105
  3. ACETAMINOPHEN [Concomitant]
     Indication: PREMEDICATION

REACTIONS (11)
  - DECUBITUS ULCER [None]
  - NAUSEA [None]
  - VOMITING [None]
  - DEPRESSION [None]
  - NEURALGIA [None]
  - HYPERSOMNIA [None]
  - BEDRIDDEN [None]
  - PNEUMONIA [None]
  - TOOTH ABSCESS [None]
  - BLOOD POTASSIUM DECREASED [None]
  - MUSCLE SPASMS [None]
